FAERS Safety Report 7020299-5 (Version None)
Quarter: 2010Q3

REPORT INFORMATION
  Report Type: 
  Country: None (occurrence: None)
  Receive Date: 20100929
  Receipt Date: 20100916
  Transmission Date: 20110219
  Serious: Yes (Other)
  Sender: FDA-Public Use
  Company Number: US-ELI_LILLY_AND_COMPANY-US201009002923

PATIENT
  Sex: Male

DRUGS (1)
  1. ZYPREXA [Suspect]
     Indication: SCHIZOPHRENIA
     Dosage: 20 MG, EACH EVENING
     Dates: start: 20070914

REACTIONS (5)
  - CONFUSIONAL STATE [None]
  - HALLUCINATION [None]
  - INSOMNIA [None]
  - NEOPLASM MALIGNANT [None]
  - PULMONARY EMBOLISM [None]
